FAERS Safety Report 10213071 (Version 1)
Quarter: 2014Q2

REPORT INFORMATION
  Report Type: Spontaneous
  Country: US (occurrence: US)
  Receive Date: 20140603
  Receipt Date: 20140603
  Transmission Date: 20141212
  Serious: No
  Sender: FDA-Public Use
  Company Number: US-009507513-1406USA000177

PATIENT
  Sex: 0

DRUGS (1)
  1. ZETIA [Suspect]
     Indication: HYPERLIPIDAEMIA
     Dosage: DOSE/FREQUENCY: ONE TABLET DAILY
     Route: 048
     Dates: start: 20140424

REACTIONS (3)
  - Circumstance or information capable of leading to medication error [Unknown]
  - No adverse event [Unknown]
  - Product quality issue [Unknown]
